FAERS Safety Report 7386668-9 (Version None)
Quarter: 2011Q1

REPORT INFORMATION
  Report Type: 
  Country: None (occurrence: None)
  Receive Date: 20110323
  Receipt Date: 20110315
  Transmission Date: 20110831
  Serious: Yes (Death, Life-Threatening, Hospitalization, Other)
  Sender: FDA-Public Use
  Company Number: 2010EU003713

PATIENT
  Age: 53 Year
  Sex: Male
  Weight: 70 kg

DRUGS (16)
  1. CLAVENTIN (TICARCILLIN DISODIUM) [Concomitant]
  2. VITAMIN K (VITAMIN K NOS) [Concomitant]
  3. PRIMAXIN [Concomitant]
  4. TRACRIUM [Concomitant]
  5. MYCAMINE [Suspect]
     Indication: CANDIDIASIS
     Dosage: 100 MG, IUD/QD, IV NOS
     Route: 042
     Dates: start: 20100525, end: 20100610
  6. PANTOPRAZOLE SODIUM [Concomitant]
  7. MIDAZOLAM HCL [Concomitant]
  8. NUTRISON (CARBOHYDRATES NOS, LIPIDS NOS, PROTEINS NOS) [Concomitant]
  9. BUMETANIDE [Concomitant]
  10. TICAR [Concomitant]
  11. CEFTAZIDIME SODIUM [Suspect]
  12. DIPRIVAN [Concomitant]
  13. ALBUMIN (HUMAN) [Concomitant]
  14. FLUCYTOSINE (FLUCYTOSINE) [Concomitant]
  15. SUFENTA (SUFENTANIL CITRATE) [Concomitant]
  16. STRUCTOKABIVEN (ALANINE) [Concomitant]

REACTIONS (5)
  - HEPATIC FAILURE [None]
  - MULTI-ORGAN FAILURE [None]
  - RENAL FAILURE [None]
  - DRUG INEFFECTIVE [None]
  - SEPTIC SHOCK [None]
